FAERS Safety Report 7671505-5 (Version None)
Quarter: 2011Q3

REPORT INFORMATION
  Report Type: 
  Country: None (occurrence: None)
  Receive Date: 20110728
  Receipt Date: 20110715
  Transmission Date: 20111222
  Serious: Yes (Hospitalization)
  Sender: FDA-Public Use
  Company Number: 2011029196

PATIENT
  Age: 63 Year
  Sex: Male

DRUGS (1)
  1. HIZENTRA [Suspect]
     Dosage: (SUBCUTANEOUS)
     Route: 058

REACTIONS (2)
  - PNEUMONIA [None]
  - ENCEPHALOPATHY [None]
